FAERS Safety Report 4552961-8 (Version None)
Quarter: 2005Q1

REPORT INFORMATION
  Report Type: 
  Country: None (occurrence: None)
  Receive Date: 20050113
  Receipt Date: 20050105
  Transmission Date: 20050727
  Serious: Yes (Life-Threatening, Hospitalization)
  Sender: FDA-Public Use
  Company Number: 200510019BWH

PATIENT
  Age: 66 Year
  Sex: Female
  Weight: 73.7095 kg

DRUGS (21)
  1. AVELOX [Suspect]
     Indication: ASTHMA
     Dosage: 400 MG, QD, ORAL
     Route: 048
     Dates: start: 20041220, end: 20041227
  2. ZOCOR [Concomitant]
  3. ZETIA [Concomitant]
  4. PRAVACHOL [Concomitant]
  5. K-DUR 10 [Concomitant]
  6. THEOPHYLLINE [Concomitant]
  7. GLYBURIDE [Concomitant]
  8. METFORMIN HCL [Concomitant]
  9. CLARINEX /USA/ [Concomitant]
  10. RANITIDINE [Concomitant]
  11. ALBUTEROL [Concomitant]
  12. CROMOLYN SODIUM [Concomitant]
  13. FLOVENT [Concomitant]
  14. CALCIUM WITH VITAMIN D [Concomitant]
  15. MULTIVITAMIN [Concomitant]
  16. VITAMIN C [Concomitant]
  17. VITAMIN E [Concomitant]
  18. SELENIUM TRACE METAL ADDITIVE [Concomitant]
  19. SINGULAIR [Concomitant]
  20. PNEUMOVAX 23 [Concomitant]
  21. FLU SHOT [Concomitant]

REACTIONS (7)
  - ASTHENIA [None]
  - ATRIOVENTRICULAR BLOCK COMPLETE [None]
  - BLOOD PRESSURE DIASTOLIC DECREASED [None]
  - DIZZINESS [None]
  - DYSPNOEA [None]
  - VENTRICULAR EXTRASYSTOLES [None]
  - WHEEZING [None]
